FAERS Safety Report 6160358-2 (Version None)
Quarter: 2009Q2

REPORT INFORMATION
  Report Type: 
  Country: None (occurrence: None)
  Receive Date: 20090416
  Receipt Date: 20090406
  Transmission Date: 20091009
  Serious: Yes (Disabling)
  Sender: FDA-Public Use
  Company Number: SPV1-2009-00582

PATIENT
  Age: 16 Year
  Sex: Female
  Weight: 63.5 kg

DRUGS (1)
  1. DAYTRANA [Suspect]
     Indication: ATTENTION DEFICIT/HYPERACTIVITY DISORDER
     Dosage: 15 MG, 1X/DAY; QD, TRANSDERMAL
     Route: 062
     Dates: start: 20070101, end: 20090101

REACTIONS (7)
  - BLOOD BILIRUBIN INCREASED [None]
  - DECREASED APPETITE [None]
  - FATIGUE [None]
  - JAUNDICE [None]
  - OFF LABEL USE [None]
  - TREATMENT NONCOMPLIANCE [None]
  - WEIGHT DECREASED [None]
